FAERS Safety Report 4875503-6 (Version None)
Quarter: 2006Q1

REPORT INFORMATION
  Report Type: 
  Country: None (occurrence: None)
  Receive Date: 20060109
  Receipt Date: 20030703
  Transmission Date: 20060701
  Serious: Yes (Life-Threatening, Hospitalization)
  Sender: FDA-Public Use
  Company Number: PHEH2003US05717

PATIENT
  Age: 36 Year
  Sex: Female
  Weight: 110 kg

DRUGS (2)
  1. DEPAKOTE [Concomitant]
     Dosage: 1500 MG, QD
     Route: 048
  2. CLOZARIL [Suspect]
     Indication: PSYCHOTIC DISORDER
     Dosage: 25-300 MG, QHS
     Route: 048
     Dates: start: 20030429, end: 20030515

REACTIONS (20)
  - ASCITES [None]
  - BLOOD PRESSURE ORTHOSTATIC ABNORMAL [None]
  - CARDIAC TAMPONADE [None]
  - DERMATOMYOSITIS [None]
  - DYSARTHRIA [None]
  - DYSPNOEA [None]
  - ERYTHEMA [None]
  - HYPOXIA [None]
  - LEUKOCYTOCLASTIC VASCULITIS [None]
  - LUNG CONSOLIDATION [None]
  - PARANOIA [None]
  - PERICARDIAL DRAINAGE [None]
  - PERICARDIAL EFFUSION [None]
  - PERICARDIAL EXCISION [None]
  - PERICARDITIS [None]
  - PLEURAL EFFUSION [None]
  - RASH MACULO-PAPULAR [None]
  - SWAN GANZ CATHETER PLACEMENT [None]
  - TACHYCARDIA [None]
  - TACHYPNOEA [None]
